FAERS Safety Report 4789461-6 (Version None)
Quarter: 2005Q4

REPORT INFORMATION
  Report Type: 
  Country: None (occurrence: None)
  Receive Date: 20051004
  Receipt Date: 20051004
  Transmission Date: 20060501
  Serious: Yes (Death, Life-Threatening)
  Sender: FDA-Public Use
  Company Number: None

PATIENT
  Age: 76 Year
  Sex: Female
  Weight: 39.0093 kg

DRUGS (7)
  1. FENTANYL [Suspect]
     Indication: HERPES ZOSTER
     Dosage: 50 MCG/HR, TO BE REPLACED EVERY 48 TO 72 HOURS
     Dates: start: 20050917, end: 20050919
  2. FENTANYL [Suspect]
     Indication: PAIN
     Dosage: 50 MCG/HR, TO BE REPLACED EVERY 48 TO 72 HOURS
     Dates: start: 20050917, end: 20050919
  3. DEMEROL [Concomitant]
  4. VICODIN [Concomitant]
  5. PREDNISONE [Concomitant]
  6. GABAPENTIN [Concomitant]
  7. LIDOCAINE OINTMENT [Concomitant]

REACTIONS (18)
  - ABDOMINAL DISTENSION [None]
  - BREATH SOUNDS ABNORMAL [None]
  - CONSTIPATION [None]
  - DELIRIUM [None]
  - DEPRESSED LEVEL OF CONSCIOUSNESS [None]
  - DIFFICULTY IN WALKING [None]
  - DIZZINESS [None]
  - DRUG PRESCRIBING ERROR [None]
  - DYSARTHRIA [None]
  - DYSKINESIA [None]
  - HEART RATE INCREASED [None]
  - HEART RATE IRREGULAR [None]
  - HYPOTENSION [None]
  - MICTURITION DISORDER [None]
  - MUSCLE TWITCHING [None]
  - RESPIRATION ABNORMAL [None]
  - SOMNOLENCE [None]
  - WHEEZING [None]
